FAERS Safety Report 9915220 (Version 1)
Quarter: 2014Q1

REPORT INFORMATION
  Report Type: Report from Study
  Country: GB (occurrence: GB)
  Receive Date: 20140220
  Receipt Date: 20140220
  Transmission Date: 20141002
  Serious: Yes (Hospitalization, Other)
  Sender: FDA-Public Use
  Company Number: GB-ASTRAZENECA-2014SE11187

PATIENT
  Age: 61 Year
  Sex: Male

DRUGS (8)
  1. ACETYLSALICYLIC ACID [Suspect]
     Indication: ACUTE CORONARY SYNDROME
     Route: 048
     Dates: start: 20130816
  2. TICAGRELOR [Suspect]
     Indication: ACUTE CORONARY SYNDROME
     Route: 048
     Dates: start: 20130816
  3. CLOPIDOGREL [Concomitant]
     Route: 048
  4. ATORVASTATIN [Concomitant]
  5. ISOSORBIDE MONONITRATE [Concomitant]
  6. ISOSORBIDE MONONITRATE [Concomitant]
  7. BISOPROLOL [Concomitant]
  8. GTN SPRAY [Concomitant]
     Dosage: AS NEEDED

REACTIONS (1)
  - Angina unstable [Recovered/Resolved with Sequelae]
